FAERS Safety Report 8771952 (Version 3)
Quarter: 2012Q4

REPORT INFORMATION
  Report Type: 
  Country: US (occurrence: US)
  Receive Date: 20120906
  Receipt Date: 20120914
  Transmission Date: 20130627
  Serious: Yes (Hospitalization, Other)
  Sender: FDA-Public Use
  Company Number: US-ROCHE-1115964

PATIENT
  Age: 56 Year
  Sex: Female
  Weight: 49.49 kg

DRUGS (3)
  1. BONIVA [Suspect]
     Indication: OSTEOPOROSIS
     Route: 048
     Dates: start: 20110220
  2. ALENDRONATE [Suspect]
     Indication: OSTEOPOROSIS
     Route: 048
     Dates: start: 20120420, end: 201205
  3. ACTONEL [Suspect]
     Indication: OSTEOPOROSIS
     Route: 048
     Dates: start: 20090721, end: 20110220

REACTIONS (3)
  - Femur fracture [Unknown]
  - Hip fracture [Recovering/Resolving]
  - Femur fracture [Unknown]
